FAERS Safety Report 5034634-0 (Version None)
Quarter: 2006Q2

REPORT INFORMATION
  Report Type: 
  Country: None (occurrence: None)
  Receive Date: 20060621
  Receipt Date: 20060609
  Transmission Date: 20061013
  Serious: Yes (Hospitalization)
  Sender: FDA-Public Use
  Company Number: PAR_0670_2006

PATIENT
  Age: 80 Year
  Sex: Female

DRUGS (5)
  1. CAPOTEN [Suspect]
     Dosage: DF
     Dates: start: 20060318
  2. METHOTREXATE PARANOVA [Concomitant]
  3. LAKTULOS [Concomitant]
  4. HERACILLIN [Concomitant]
  5. TRADOLAN [Concomitant]

REACTIONS (4)
  - DEHYDRATION [None]
  - FATIGUE [None]
  - HYPONATRAEMIA [None]
  - URINARY TRACT INFECTION [None]
